FAERS Safety Report 4819988-X (Version None)
Quarter: 2005Q4

REPORT INFORMATION
  Report Type: 
  Country: None (occurrence: None)
  Receive Date: 20051103
  Receipt Date: 20050311
  Transmission Date: 20060501
  Serious: Yes (Death, Hospitalization)
  Sender: FDA-Public Use
  Company Number: US-MERCK-0503USA02797

PATIENT
  Age: 57 Year
  Sex: Male

DRUGS (7)
  1. VIOXX [Suspect]
     Indication: OSTEOARTHRITIS
     Route: 048
     Dates: start: 20000101, end: 20031108
  2. VIOXX [Suspect]
     Route: 048
     Dates: start: 20000101, end: 20031108
  3. VIOXX [Suspect]
     Route: 048
     Dates: start: 20000101, end: 20031108
  4. VIOXX [Suspect]
     Route: 048
     Dates: start: 20000101, end: 20031108
  5. VIOXX [Suspect]
     Route: 048
     Dates: start: 20000101, end: 20031108
  6. VIOXX [Suspect]
     Route: 048
     Dates: start: 20000101, end: 20031108
  7. CELEBREX [Concomitant]
     Route: 065

REACTIONS (4)
  - ANGINA PECTORIS [None]
  - DRUG HYPERSENSITIVITY [None]
  - HAEMORRHAGE [None]
  - MYOCARDIAL INFARCTION [None]
